FAERS Safety Report 17173017 (Version 2)
Quarter: 2020Q1

REPORT INFORMATION
  Report Type: Spontaneous
  Country: US (occurrence: US)
  Receive Date: 20191219
  Receipt Date: 20200221
  Transmission Date: 20200409
  Serious: No
  Sender: FDA-Public Use
  Company Number: US-JNJFOC-20191221145

PATIENT
  Age: 44 Year
  Sex: Female
  Weight: 59.47 kg

DRUGS (1)
  1. STELARA [Suspect]
     Active Substance: USTEKINUMAB
     Indication: PRODUCT USED FOR UNKNOWN INDICATION
     Route: 042
     Dates: start: 20191127

REACTIONS (1)
  - Cold sweat [Recovered/Resolved]

NARRATIVE: CASE EVENT DATE: 20191227
